FAERS Safety Report 8167916-4 (Version None)
Quarter: 2012Q1

REPORT INFORMATION
  Report Type: 
  Country: None (occurrence: None)
  Receive Date: 20120227
  Receipt Date: 20120223
  Transmission Date: 20120608
  Serious: Yes (Other)
  Sender: FDA-Public Use
  Company Number: US-GLAXOSMITHKLINE-A0899026A

PATIENT
  Age: 46 Year
  Sex: Male

DRUGS (1)
  1. AVANDIA [Suspect]
     Indication: DIABETES MELLITUS
     Dosage: 10MG UNKNOWN
     Route: 048
     Dates: start: 20010101, end: 20030101

REACTIONS (2)
  - CARDIAC FAILURE [None]
  - HEART RATE IRREGULAR [None]
